FAERS Safety Report 17130717 (Version 2)
Quarter: 2019Q4

REPORT INFORMATION
  Report Type: Report from Study
  Country: CA (occurrence: CA)
  Receive Date: 20191209
  Receipt Date: 20191209
  Transmission Date: 20200122
  Serious: Yes (Other)
  Sender: FDA-Public Use
  Company Number: CA-BAYER-2019-195201

PATIENT
  Sex: Female

DRUGS (2)
  1. STIVARGA [Suspect]
     Active Substance: REGORAFENIB
     Indication: APPENDIX CANCER
     Dosage: DAILY DOSE 120 MG
  2. STIVARGA [Suspect]
     Active Substance: REGORAFENIB
     Indication: COLON CANCER
     Dosage: 120 MG, QD (3 WKS ON 1 WK OFF)
     Dates: start: 20191030, end: 20191114

REACTIONS (4)
  - Jaundice [None]
  - Off label use [Unknown]
  - Obstruction [None]
  - Constipation [Recovering/Resolving]
